FAERS Safety Report 4805447-7 (Version None)
Quarter: 2005Q4

REPORT INFORMATION
  Report Type: 
  Country: None (occurrence: None)
  Receive Date: 20051018
  Receipt Date: 20051006
  Transmission Date: 20060501
  Serious: Yes (Other)
  Sender: FDA-Public Use
  Company Number: 12544

PATIENT
  Sex: Male

DRUGS (5)
  1. DOXORUBICIN [Suspect]
  2. VINCRISTINE SULFATE [Suspect]
  3. DACTINOMYCIN [Suspect]
     Indication: CLEAR CELL SARCOMA OF THE KIDNEY
  4. ATENOLOL [Concomitant]
  5. NIFEDIPINE [Concomitant]

REACTIONS (4)
  - BONE MARROW FAILURE [None]
  - DECREASED APPETITE [None]
  - VOMITING [None]
  - WEIGHT DECREASED [None]
